FAERS Safety Report 6940110-8 (Version None)
Quarter: 2010Q3

REPORT INFORMATION
  Report Type: 
  Country: None (occurrence: None)
  Receive Date: 20100825
  Receipt Date: 20100818
  Transmission Date: 20110219
  Serious: Yes (Hospitalization, Other)
  Sender: FDA-Public Use
  Company Number: US-RB-014371-10

PATIENT
  Age: 53 Year
  Sex: Male

DRUGS (6)
  1. SUBOXONE [Suspect]
     Route: 060
     Dates: start: 20100401, end: 20100601
  2. SUBOXONE [Suspect]
     Indication: PAIN
     Route: 060
     Dates: start: 20100601, end: 20100804
  3. ATIVAN [Suspect]
     Indication: ANXIETY
     Dosage: UNKNOWN DOSING DETAILS
     Route: 065
  4. KLONOPIN [Suspect]
     Indication: ANXIETY
     Dosage: UNKNOWN DSOING DETAILS
     Route: 065
  5. ANTI-DEPRESSANTS [Suspect]
     Indication: DEPRESSION
     Dosage: UNKNOWN DOSING DETAILS
     Route: 065
  6. WARFARIN [Concomitant]
     Indication: HEART VALVE REPLACEMENT
     Dosage: UNKNOWN DOSING DETAILS
     Route: 065
     Dates: start: 19800101

REACTIONS (6)
  - ANXIETY [None]
  - FALL [None]
  - LOSS OF CONSCIOUSNESS [None]
  - MEMORY IMPAIRMENT [None]
  - MUSCULAR WEAKNESS [None]
  - PSYCHOTIC DISORDER [None]
